FAERS Safety Report 7525048-X (Version None)
Quarter: 2011Q2

REPORT INFORMATION
  Report Type: 
  Country: None (occurrence: None)
  Receive Date: 20110606
  Receipt Date: 20110523
  Transmission Date: 20111010
  Serious: Yes (Other)
  Sender: FDA-Public Use
  Company Number: US-ELI_LILLY_AND_COMPANY-US201008001481

PATIENT
  Sex: Male

DRUGS (20)
  1. AGGRENOX [Concomitant]
  2. HYTRIN [Concomitant]
  3. MULTIVIT [Concomitant]
  4. NASONEX [Concomitant]
  5. METAMUCIL-2 [Concomitant]
  6. FORTEO [Suspect]
     Dosage: 20 UG, DAILY (1/D)
  7. DILTIAZEM [Concomitant]
  8. FORTEO [Suspect]
     Dosage: 20 UG, QD
     Route: 058
  9. FORTEO [Suspect]
     Indication: OSTEOPOROSIS
     Dosage: 20 UG, DAILY (1/D)
     Route: 058
     Dates: start: 20100618, end: 20100726
  10. FORTEO [Suspect]
     Dosage: 20 UG, DAILY (1/D)
     Route: 058
  11. PROTONIX [Concomitant]
  12. VITAMIN D [Concomitant]
  13. VIT C [Concomitant]
  14. CALCIUM CARBONATE [Concomitant]
  15. GLUCOSAMINE CHONDROITIN [Concomitant]
  16. VENTOLIN                                /SCH/ [Concomitant]
  17. B50 [Concomitant]
  18. SINGULAIR [Concomitant]
  19. NAPROSYN [Concomitant]
  20. VICODIN [Concomitant]

REACTIONS (8)
  - MUSCULAR WEAKNESS [None]
  - HAEMOGLOBIN ABNORMAL [None]
  - PAIN [None]
  - PIGMENTATION DISORDER [None]
  - COUGH [None]
  - ARTERIAL OCCLUSIVE DISEASE [None]
  - NAIL DISORDER [None]
  - INJECTION SITE PRURITUS [None]
